FAERS Safety Report 10040690 (Version 1)
Quarter: 2014Q1

REPORT INFORMATION
  Report Type: Spontaneous
  Country: SE (occurrence: SE)
  Receive Date: 20140327
  Receipt Date: 20140327
  Transmission Date: 20141002
  Serious: Yes (Other)
  Sender: FDA-Public Use
  Company Number: SE-TEVA-471165ISR

PATIENT
  Age: 11 Year
  Sex: Female

DRUGS (6)
  1. CARBOPLATIN [Suspect]
     Indication: NEPHROBLASTOMA
     Dosage: 3.6 G/M2
     Route: 065
  2. TEMOZOLOMIDE [Suspect]
     Indication: NEPHROBLASTOMA
     Dosage: 570 MG/M2
     Route: 065
  3. CYCLOPHOSPHAMIDE [Suspect]
     Indication: NEPHROBLASTOMA
     Dosage: 2.7 G/M2
     Route: 065
  4. IFOSFAMIDE [Suspect]
     Indication: NEPHROBLASTOMA
     Dosage: 27 G/M2
     Route: 065
  5. MELPHALAN [Suspect]
     Indication: NEPHROBLASTOMA
     Dosage: 120 MG/M2
     Route: 065
  6. THIOTEPA [Suspect]
     Indication: NEPHROBLASTOMA
     Dosage: 10 MG/M2
     Route: 065

REACTIONS (1)
  - Ovarian disorder [Not Recovered/Not Resolved]
